FAERS Safety Report 8920562 (Version 2)
Quarter: 2012Q4

REPORT INFORMATION
  Report Type: 
  Country: US (occurrence: US)
  Receive Date: 20121122
  Receipt Date: 20121217
  Transmission Date: 20130627
  Serious: Yes (Hospitalization, Other)
  Sender: FDA-Public Use
  Company Number: US-ELI_LILLY_AND_COMPANY-US201211003342

PATIENT
  Age: 61 Year
  Sex: Female

DRUGS (2)
  1. CYMBALTA [Suspect]
     Indication: ARTHRALGIA
     Dosage: 60 mg, qd
     Route: 065
  2. CYMBALTA [Suspect]
     Dosage: 60 mg, qd
     Route: 065

REACTIONS (7)
  - Abdominal pain [Unknown]
  - Hepatic enzyme increased [Recovered/Resolved]
  - Surgery [Unknown]
  - Liver injury [Unknown]
  - Hypersensitivity [Unknown]
  - Off label use [Unknown]
  - Feeling abnormal [Recovered/Resolved with Sequelae]
